FAERS Safety Report 9036863 (Version 1)
Quarter: 2013Q1

REPORT INFORMATION
  Report Type: Report from Study
  Country: US (occurrence: US)
  Receive Date: 20130129
  Receipt Date: 20130129
  Transmission Date: 20140127
  Serious: No
  Sender: FDA-Public Use
  Company Number: US-ABBOTT-12P-163-0898821-00

PATIENT
  Sex: Female
  Weight: 79.45 kg

DRUGS (5)
  1. HUMIRA 40 MG/0.8 ML PEN [Suspect]
     Indication: ANKYLOSING SPONDYLITIS
     Dates: start: 201011
  2. IMURAN [Concomitant]
     Indication: BEHCET^S SYNDROME
  3. ATELVIA [Concomitant]
     Indication: BONE DISORDER
  4. VITAMIN D3 [Concomitant]
     Indication: VITAMIN SUPPLEMENTATION
  5. COUMADIN [Concomitant]
     Indication: THROMBOSIS PROPHYLAXIS

REACTIONS (1)
  - Cataract [Not Recovered/Not Resolved]
